FAERS Safety Report 9213653 (Version 2)
Quarter: 2013Q2

REPORT INFORMATION
  Report Type: Spontaneous
  Country: US (occurrence: US)
  Receive Date: 20130405
  Receipt Date: 20130619
  Transmission Date: 20140414
  Serious: Yes (Hospitalization)
  Sender: FDA-Public Use
  Company Number: US-PFIZER INC-2013105068

PATIENT
  Age: 81 Year
  Sex: Female
  Weight: 68.03 kg

DRUGS (7)
  1. REVATIO [Suspect]
     Indication: PULMONARY HYPERTENSION
     Dosage: 20 MG, 3X/DAY
     Route: 048
     Dates: start: 2010
  2. METOPROLOL [Concomitant]
     Dosage: UNK
  3. GLIMEPIRIDE [Concomitant]
     Indication: DIABETES MELLITUS
     Dosage: UNK
  4. METFORMIN [Concomitant]
     Dosage: UNK
  5. BUMETANIDE [Concomitant]
     Dosage: UNK
  6. BABY ASPIRIN [Concomitant]
     Dosage: UNK
  7. COUMADIN [Concomitant]
     Dosage: UNK

REACTIONS (7)
  - Respiratory tract congestion [Not Recovered/Not Resolved]
  - Dyspnoea [Not Recovered/Not Resolved]
  - Oxygen saturation decreased [Not Recovered/Not Resolved]
  - Bronchitis [Not Recovered/Not Resolved]
  - Local swelling [Unknown]
  - Pyrexia [Unknown]
  - Blood calcium increased [Unknown]
